FAERS Safety Report 20305039 (Version 1)
Quarter: 2022Q1

REPORT INFORMATION
  Report Type: Spontaneous
  Country: CN (occurrence: CN)
  Receive Date: 20220106
  Receipt Date: 20220106
  Transmission Date: 20220423
  Serious: Yes (Hospitalization, Other)
  Sender: FDA-Public Use
  Company Number: CN-009507513-2201CHN000168

PATIENT
  Age: 70 Year
  Sex: Male
  Weight: 55.5 kg

DRUGS (3)
  1. KEYTRUDA [Suspect]
     Active Substance: PEMBROLIZUMAB
     Indication: Chemotherapy
     Dosage: 200 MG, ONCE
     Route: 041
     Dates: start: 20210615, end: 20210615
  2. PACLITAXEL [Suspect]
     Active Substance: PACLITAXEL
     Indication: Chemotherapy
     Dosage: 0.2 G, ONCE
     Route: 041
     Dates: start: 20210615, end: 20210615
  3. CISPLATIN [Suspect]
     Active Substance: CISPLATIN
     Indication: Chemotherapy
     Dosage: 40 MG, ONCE DAILY
     Route: 041
     Dates: start: 20210615, end: 20210617

REACTIONS (6)
  - White blood cell disorder [Unknown]
  - Haemoglobin abnormal [Unknown]
  - Productive cough [Unknown]
  - Neutropenia [Recovering/Resolving]
  - Cough [Unknown]
  - Product use issue [Unknown]

NARRATIVE: CASE EVENT DATE: 20210615
